FAERS Safety Report 7248750-6 (Version None)
Quarter: 2011Q1

REPORT INFORMATION
  Report Type: 
  Country: None (occurrence: None)
  Receive Date: 20110128
  Receipt Date: 20100601
  Transmission Date: 20110831
  Serious: Yes (Hospitalization, Other)
  Sender: FDA-Public Use
  Company Number: US-BAYER-200943337NA

PATIENT
  Sex: Female
  Weight: 60.771 kg

DRUGS (9)
  1. PAXIL [Concomitant]
  2. MOTRIN [Concomitant]
     Indication: BACK PAIN
     Dosage: UNK
     Dates: start: 20070101
  3. PRILOSEC [Concomitant]
  4. XANAX [Concomitant]
  5. ZYRTEC [Concomitant]
  6. YAZ [Suspect]
     Indication: ORAL CONTRACEPTION
     Dosage: UNK UNK, QD
     Route: 048
     Dates: start: 20070601, end: 20090915
  7. PERCOCET [Concomitant]
  8. YAZ [Suspect]
     Indication: ACNE
  9. HYDROCODONE [Concomitant]
     Dosage: UNK
     Dates: start: 20090317

REACTIONS (14)
  - CHOLELITHIASIS [None]
  - DEPRESSION [None]
  - DIARRHOEA [None]
  - BACK PAIN [None]
  - NAUSEA [None]
  - ABDOMINAL DISCOMFORT [None]
  - ABDOMINAL PAIN UPPER [None]
  - GALLBLADDER DISORDER [None]
  - ANXIETY [None]
  - CHOLECYSTITIS [None]
  - INTESTINAL HAEMORRHAGE [None]
  - PAIN [None]
  - VOMITING [None]
  - CHOLECYSTECTOMY [None]
